FAERS Safety Report 7395166-8 (Version None)
Quarter: 2011Q2

REPORT INFORMATION
  Report Type: 
  Country: None (occurrence: None)
  Receive Date: 20110405
  Receipt Date: 20110324
  Transmission Date: 20111010
  Serious: Yes (Other)
  Sender: FDA-Public Use
  Company Number: PHHY2011BR21934

PATIENT
  Age: 63 Year
  Sex: Male

DRUGS (2)
  1. FORASEQ [Suspect]
     Indication: EMBOLISM ARTERIAL
     Dosage: 02 TIMES DAILY
  2. FORASEQ [Suspect]
     Indication: LUNG NEOPLASM MALIGNANT

REACTIONS (3)
  - PRODUCT QUALITY ISSUE [None]
  - DEVICE MALFUNCTION [None]
  - PULMONARY EMBOLISM [None]
